FAERS Safety Report 5038740-6 (Version None)
Quarter: 2006Q2

REPORT INFORMATION
  Report Type: 
  Country: None (occurrence: None)
  Receive Date: 20060601
  Receipt Date: 20060313
  Transmission Date: 20061013
  Serious: No
  Sender: FDA-Public Use
  Company Number: 2006PV010132

PATIENT
  Age: 57 Year
  Sex: Male
  Weight: 68.0396 kg

DRUGS (6)
  1. BYETTA [Suspect]
     Indication: DIABETES MELLITUS NON-INSULIN-DEPENDENT
     Dosage: SEE IMAGE
     Route: 058
     Dates: start: 20060209, end: 20060310
  2. BYETTA [Suspect]
     Indication: DIABETES MELLITUS NON-INSULIN-DEPENDENT
     Dosage: SEE IMAGE
     Route: 058
     Dates: start: 20060311
  3. METFORMIN [Concomitant]
  4. AMARYL [Concomitant]
  5. AVANDIA [Concomitant]
  6. LANTUS [Concomitant]

REACTIONS (2)
  - ANOREXIA [None]
  - BLOOD GLUCOSE INCREASED [None]
